FAERS Safety Report 8337152-7 (Version None)
Quarter: 2012Q2

REPORT INFORMATION
  Report Type: 
  Country: None (occurrence: None)
  Receive Date: 20120504
  Receipt Date: 20110726
  Transmission Date: 20120825
  Serious: No
  Sender: FDA-Public Use
  Company Number: US-TEVA-2011003918

PATIENT
  Sex: Male
  Weight: 96.702 kg

DRUGS (7)
  1. DOXOSINE [Concomitant]
     Dates: start: 20100101
  2. NUVIGIL [Suspect]
     Route: 048
     Dates: start: 20110717, end: 20110725
  3. DOXEPIN [Concomitant]
     Dates: start: 19960101
  4. SIMVASTATIN [Concomitant]
     Dates: start: 20100101
  5. NUVIGIL [Suspect]
     Indication: SLEEP APNOEA SYNDROME
     Dosage: 150 MILLIGRAM;
     Route: 048
     Dates: start: 20110716
  6. NUVIGIL [Suspect]
     Dosage: 150 MILLIGRAM;
     Route: 048
     Dates: start: 20110726
  7. AVODART [Concomitant]
     Dates: start: 20080101

REACTIONS (1)
  - BRUXISM [None]
